FAERS Safety Report 4687180-8 (Version None)
Quarter: 2005Q2

REPORT INFORMATION
  Report Type: 
  Country: None (occurrence: None)
  Receive Date: 20050607
  Receipt Date: 20050513
  Transmission Date: 20051028
  Serious: Yes (Death, Life-Threatening, Hospitalization)
  Sender: FDA-Public Use
  Company Number: PAR_0067_2005

PATIENT
  Age: 16 Year
  Sex: Female

DRUGS (5)
  1. IBUPROFEN [Suspect]
     Dosage: DF, UNK; PO
     Route: 048
  2. ACETAMINOPHEN [Suspect]
     Dosage: DF, UNK; PO
     Route: 048
  3. ACETAMINOPHEN AND HYDROCODONE BITARTRATE [Suspect]
     Dosage: DF, UNK; PO
     Route: 048
  4. NAIL POLISH REMOVER [Suspect]
     Dosage: DF, UNK; PO
     Route: 048
  5. PERFUME [Suspect]
     Dosage: NA

REACTIONS (12)
  - ALANINE AMINOTRANSFERASE INCREASED [None]
  - ASPARTATE AMINOTRANSFERASE INCREASED [None]
  - BLOOD PRESSURE DIASTOLIC DECREASED [None]
  - BODY TEMPERATURE DECREASED [None]
  - COMA [None]
  - COMPLETED SUICIDE [None]
  - HEART RATE INCREASED [None]
  - INTENTIONAL MISUSE [None]
  - METABOLIC ACIDOSIS [None]
  - MULTIPLE DRUG OVERDOSE [None]
  - POLYSUBSTANCE ABUSE [None]
  - VOMITING [None]
